FAERS Safety Report 6093816-X (Version None)
Quarter: 2009Q1

REPORT INFORMATION
  Report Type: 
  Country: None (occurrence: None)
  Receive Date: 20090223
  Receipt Date: 20090223
  Transmission Date: 20090719
  Serious: Yes (Other)
  Sender: FDA-Public Use
  Company Number: None

PATIENT
  Age: 2 Year
  Sex: Female
  Weight: 12.7007 kg

DRUGS (2)
  1. CEFDINIR [Suspect]
     Indication: EAR INFECTION
     Dosage: ONE HALF TEASPOONFUL TWICE A DAY PO
     Route: 048
     Dates: start: 20090217, end: 20090221
  2. CEFDINIR [Suspect]
     Indication: UPPER RESPIRATORY TRACT INFECTION
     Dosage: ONE HALF TEASPOONFUL TWICE A DAY PO
     Route: 048
     Dates: start: 20090217, end: 20090221

REACTIONS (6)
  - ABDOMINAL PAIN UPPER [None]
  - DERMATITIS DIAPER [None]
  - DIARRHOEA [None]
  - PAIN [None]
  - SCREAMING [None]
  - SPEECH DISORDER [None]
